FAERS Safety Report 12213741 (Version 2)
Quarter: 2016Q4

REPORT INFORMATION
  Report Type: Report from Study
  Country: ES (occurrence: ES)
  Receive Date: 20160328
  Receipt Date: 20161013
  Transmission Date: 20170207
  Serious: Yes (Death, Other)
  Sender: FDA-Public Use
  Company Number: ES-ASTELLAS-2016US011409

PATIENT
  Sex: Male

DRUGS (1)
  1. ERLOTINIB [Suspect]
     Active Substance: ERLOTINIB
     Indication: NON-SMALL CELL LUNG CANCER
     Dosage: 150 MG, UNKNOWN FREQ. (FOR A MAXIMUM OF 6 MONTHS)
     Route: 048

REACTIONS (13)
  - Fatigue [Unknown]
  - Rash [Unknown]
  - Infection [Unknown]
  - Radiation skin injury [Unknown]
  - Pulmonary fibrosis [Unknown]
  - Pneumonitis [Fatal]
  - Dry skin [Unknown]
  - Anaemia [Unknown]
  - Cough [Unknown]
  - Skin exfoliation [Unknown]
  - Diarrhoea [Unknown]
  - Decreased appetite [Unknown]
  - Vomiting [Unknown]
